FAERS Safety Report 24943634 (Version 1)
Quarter: 2025Q1

REPORT INFORMATION
  Report Type: Spontaneous
  Country: FR (occurrence: FR)
  Receive Date: 20250207
  Receipt Date: 20250207
  Transmission Date: 20250408
  Serious: Yes (Hospitalization)
  Sender: PFIZER
  Company Number: None

PATIENT
  Age: 57 Year
  Sex: Male
  Weight: 61 kg

DRUGS (4)
  1. SOLU-MEDROL [Suspect]
     Active Substance: METHYLPREDNISOLONE SODIUM SUCCINATE
     Indication: Polyneuropathy in malignant disease
     Dosage: 1000 MG, MONTHLY
     Route: 042
     Dates: start: 20240415, end: 20241102
  2. CYCLOPHOSPHAMIDE [Suspect]
     Active Substance: CYCLOPHOSPHAMIDE
     Indication: Polyneuropathy in malignant disease
     Dosage: 1000 MG, MONTHLY;  C6 IN TOTAL
     Route: 042
     Dates: start: 20240507, end: 20240930
  3. CLAIRYG [Suspect]
     Active Substance: HUMAN IMMUNOGLOBULIN G
     Indication: Polyneuropathy in malignant disease
     Route: 042
     Dates: start: 20240415, end: 20241102
  4. MESNA [Suspect]
     Active Substance: MESNA
     Indication: Polyneuropathy in malignant disease
     Dosage: 1000 MG, MONTHLY; C6 IN TOTAL
     Route: 042
     Dates: start: 20240507, end: 20240930

REACTIONS (2)
  - Hepatitis acute [Recovering/Resolving]
  - Off label use [Unknown]

NARRATIVE: CASE EVENT DATE: 20240415
